FAERS Safety Report 20613379 (Version 1)
Quarter: 2022Q1

REPORT INFORMATION
  Report Type: Spontaneous
  Country: JP (occurrence: JP)
  Receive Date: 20220319
  Receipt Date: 20220319
  Transmission Date: 20220423
  Serious: Yes (Hospitalization, Disabling, Other)
  Sender: FDA-Public Use
  Company Number: JP-CELLTRION INC.-2021JP013548

PATIENT

DRUGS (2)
  1. INFLIXIMAB [Suspect]
     Active Substance: INFLIXIMAB
     Indication: Colitis
     Dosage: UNK
     Route: 042
  2. INFLIXIMAB [Suspect]
     Active Substance: INFLIXIMAB
     Dosage: THREE DAYS AFTER TRANSFER

REACTIONS (3)
  - Herpes simplex encephalitis [Recovered/Resolved with Sequelae]
  - Diarrhoea [Unknown]
  - Off label use [Unknown]
